FAERS Safety Report 7645040-4 (Version None)
Quarter: 2011Q3

REPORT INFORMATION
  Report Type: 
  Country: None (occurrence: None)
  Receive Date: 20110729
  Receipt Date: 20110725
  Transmission Date: 20111222
  Serious: Yes (Death)
  Sender: FDA-Public Use
  Company Number: LV-GLAXOSMITHKLINE-B0734848A

PATIENT
  Sex: Male
  Weight: 90 kg

DRUGS (3)
  1. ARIXTRA [Suspect]
     Indication: CARDIAC FAILURE
     Dosage: 2.5MG PER DAY
     Route: 058
     Dates: start: 20110705, end: 20110711
  2. WARFARIN SODIUM [Concomitant]
     Indication: THROMBOSIS PROPHYLAXIS
     Dosage: 1.5MG PER DAY
     Route: 042
  3. ASPIRIN [Concomitant]
     Indication: THROMBOSIS PROPHYLAXIS
     Dosage: 100MG PER DAY
     Route: 048

REACTIONS (5)
  - MOVEMENT DISORDER [None]
  - INTRACRANIAL HAEMATOMA [None]
  - HEART RATE IRREGULAR [None]
  - BRAIN OEDEMA [None]
  - CIRCULATORY COLLAPSE [None]
